FAERS Safety Report 23273882 (Version 2)
Quarter: 2023Q4

REPORT INFORMATION
  Report Type: Other
  Country: ES (occurrence: ES)
  Receive Date: 20231207
  Receipt Date: 20231227
  Transmission Date: 20240109
  Serious: Yes (Hospitalization)
  Sender: FDA-Public Use
  Company Number: ES-ALVOGEN-2023092695

PATIENT
  Age: 26 Year
  Sex: Male
  Weight: 67 kg

DRUGS (1)
  1. DISULFIRAM [Suspect]
     Active Substance: DISULFIRAM
     Indication: Alcohol use disorder

REACTIONS (1)
  - Mania [Recovered/Resolved]
